FAERS Safety Report 10208595 (Version 1)
Quarter: 2014Q2

REPORT INFORMATION
  Report Type: Report from Study
  Country: TW (occurrence: TW)
  Receive Date: 20140530
  Receipt Date: 20140530
  Transmission Date: 20141212
  Serious: Yes (Hospitalization)
  Sender: FDA-Public Use
  Company Number: TW-US-EMD SERONO, INC.-7295377

PATIENT
  Age: 12 Year
  Sex: Male
  Weight: 29 kg

DRUGS (1)
  1. SAIZEN [Suspect]
     Indication: GROWTH HORMONE DEFICIENCY
     Dates: start: 20090110

REACTIONS (1)
  - Bone marrow failure [Recovered/Resolved]
